FAERS Safety Report 5408171-5 (Version None)
Quarter: 2007Q3

REPORT INFORMATION
  Report Type: 
  Country: None (occurrence: None)
  Receive Date: 20070808
  Receipt Date: 20070803
  Transmission Date: 20080115
  Serious: Yes (Hospitalization, Other)
  Sender: FDA-Public Use
  Company Number: PHEH2007US10545

PATIENT
  Sex: Female

DRUGS (2)
  1. DIOVAN [Suspect]
     Dosage: UNK, UNK
  2. PLAVIX [Suspect]
     Dosage: UNK, UNK

REACTIONS (5)
  - CARDIAC PACEMAKER INSERTION [None]
  - CELLULITIS [None]
  - ERYTHEMA [None]
  - LYMPHOEDEMA [None]
  - OEDEMA PERIPHERAL [None]
